FAERS Safety Report 6023917-3 (Version None)
Quarter: 2008Q4

REPORT INFORMATION
  Report Type: 
  Country: None (occurrence: None)
  Receive Date: 20081230
  Receipt Date: 20081216
  Transmission Date: 20090506
  Serious: Yes (Hospitalization)
  Sender: FDA-Public Use
  Company Number: JP-GENENTECH-273222

PATIENT
  Sex: Female
  Weight: 58 kg

DRUGS (7)
  1. AVASTIN [Suspect]
     Indication: COLON CANCER METASTATIC
     Dosage: 5 MG/KG, Q2W
     Route: 041
     Dates: start: 20080728, end: 20080922
  2. IRINOTECAN HYDROCHLORIDE [Suspect]
     Indication: COLON CANCER METASTATIC
     Dosage: 100 MG, Q2W
     Route: 041
     Dates: start: 20080728
  3. FLUOROURACIL [Suspect]
     Indication: COLON CANCER METASTATIC
     Dosage: 400 MG, Q2W
     Route: 042
     Dates: start: 20080728
  4. LEUCOVORIN CALCIUM [Suspect]
     Indication: COLON CANCER METASTATIC
     Dosage: 200 MG, Q2W
     Route: 041
     Dates: start: 20080728
  5. DECADRON [Suspect]
     Indication: PROPHYLAXIS
     Dosage: 8 MG, Q2W
     Route: 042
     Dates: start: 20080728
  6. ANGIOTENSIN II RECEPTOR ANTAGONISTS [Concomitant]
     Indication: HYPERTENSION
  7. KYTRIL [Concomitant]
     Indication: DRUG USE FOR UNKNOWN INDICATION
     Dosage: UNK
     Dates: start: 20080728

REACTIONS (3)
  - DEEP VEIN THROMBOSIS [None]
  - REFLUX OESOPHAGITIS [None]
  - STOMATITIS [None]
